FAERS Safety Report 17967953 (Version 4)
Quarter: 2021Q4

REPORT INFORMATION
  Report Type: Report from Study
  Country: CA (occurrence: CA)
  Receive Date: 20200701
  Receipt Date: 20211028
  Transmission Date: 20220303
  Serious: Yes (Other)
  Sender: FDA-Public Use
  Company Number: NVSC2020CA025101

PATIENT
  Age: 44 Year
  Sex: Female

DRUGS (15)
  1. ERELZI [Suspect]
     Active Substance: ETANERCEPT-SZZS
     Indication: Rheumatoid arthritis
     Dosage: 50 MG, QW
     Route: 058
     Dates: start: 20200126, end: 20210705
  2. METHOTREXATE [Suspect]
     Active Substance: METHOTREXATE
     Indication: Rheumatoid arthritis
     Dosage: 0.4 MG, QW
     Route: 058
     Dates: start: 2018
  3. METHOTREXATE [Suspect]
     Active Substance: METHOTREXATE
     Dosage: 0.8 MG, QW
     Route: 058
  4. METHOTREXATE [Suspect]
     Active Substance: METHOTREXATE
     Dosage: UNK, QW
     Route: 048
     Dates: start: 2018, end: 2018
  5. GABAPENTIN [Suspect]
     Active Substance: GABAPENTIN
     Indication: Product used for unknown indication
     Dosage: UNK
     Route: 065
  6. XELJANZ [Suspect]
     Active Substance: TOFACITINIB CITRATE
     Indication: Product used for unknown indication
     Dosage: 1 DF, QD
     Route: 048
     Dates: start: 201909, end: 201911
  7. HYDROXYCHLOROQUINE [Concomitant]
     Active Substance: HYDROXYCHLOROQUINE
     Indication: Rheumatoid arthritis
     Dosage: 400 MG, QD
     Route: 065
  8. FOLIC ACID [Concomitant]
     Active Substance: FOLIC ACID
     Indication: Product used for unknown indication
     Dosage: 1 DF (5, UNIT WAS NOT REPORTED) QD
     Route: 048
     Dates: start: 2018
  9. FOLIC ACID [Concomitant]
     Active Substance: FOLIC ACID
     Dosage: UNK MG
     Route: 065
  10. PLAQUINOL [Concomitant]
     Active Substance: HYDROXYCHLOROQUINE SULFATE
     Indication: Product used for unknown indication
     Dosage: UNK
     Route: 048
     Dates: start: 2018, end: 201903
  11. PREDNISONE [Concomitant]
     Active Substance: PREDNISONE
     Indication: Product used for unknown indication
     Dosage: 1 DF, QD
     Route: 048
     Dates: start: 2019
  12. LYRICA [Concomitant]
     Active Substance: PREGABALIN
     Indication: Product used for unknown indication
     Dosage: 1 DF, QD
     Route: 048
     Dates: start: 201910
  13. MAVIK [Concomitant]
     Active Substance: TRANDOLAPRIL
     Indication: Blood pressure abnormal
     Dosage: 1 DF, QD
     Route: 048
     Dates: start: 2018
  14. AMLODIPINE [Concomitant]
     Active Substance: AMLODIPINE BESYLATE
     Indication: Product used for unknown indication
     Dosage: 1 DF, QD
     Route: 048
     Dates: start: 2019
  15. NAPROXEN [Concomitant]
     Active Substance: NAPROXEN
     Indication: Product used for unknown indication
     Dosage: 1 DF, BID
     Route: 048
     Dates: start: 2017

REACTIONS (39)
  - Palindromic rheumatism [Recovering/Resolving]
  - Rheumatoid arthritis [Recovering/Resolving]
  - Peripheral swelling [Unknown]
  - Grip strength decreased [Recovering/Resolving]
  - Limb discomfort [Recovered/Resolved]
  - Arthralgia [Unknown]
  - Cough [Recovered/Resolved]
  - Arthralgia [Recovered/Resolved]
  - Exostosis [Recovered/Resolved]
  - Synovitis [Recovered/Resolved]
  - Fibromyalgia [Not Recovered/Not Resolved]
  - Pain in extremity [Recovered/Resolved]
  - Malaise [Unknown]
  - Myalgia [Unknown]
  - Dysphonia [Recovered/Resolved]
  - Osteoarthritis [Unknown]
  - Mobility decreased [Unknown]
  - Joint swelling [Unknown]
  - Abdominal discomfort [Unknown]
  - Respiratory disorder [Recovered/Resolved]
  - Pain [Unknown]
  - Weight decreased [Unknown]
  - Fall [Unknown]
  - Swelling [Unknown]
  - Somnolence [Unknown]
  - Musculoskeletal stiffness [Recovered/Resolved]
  - Arthritis [Unknown]
  - Neck pain [Recovered/Resolved]
  - Arthralgia [Unknown]
  - Joint space narrowing [Unknown]
  - Osteopenia [Unknown]
  - Fatigue [Unknown]
  - Depressed mood [Unknown]
  - Hypokinesia [Unknown]
  - Bursitis [Unknown]
  - Nausea [Unknown]
  - Injection site bruising [Unknown]
  - Injection site pain [Unknown]
  - Drug ineffective [Unknown]

NARRATIVE: CASE EVENT DATE: 20190101
